FAERS Safety Report 9615979 (Version 2)
Quarter: 2013Q4

REPORT INFORMATION
  Report Type: Spontaneous
  Country: US (occurrence: US)
  Receive Date: 20131011
  Receipt Date: 20131011
  Transmission Date: 20140711
  Serious: No
  Sender: FDA-Public Use
  Company Number: US-PURDUE-USA-2013-0099885

PATIENT
  Age: 55 Year
  Sex: Female
  Weight: 65.76 kg

DRUGS (1)
  1. BUTRANS [Suspect]
     Indication: SPINAL DISORDER
     Dosage: 10 MCG/HR, WEEKLY
     Route: 062
     Dates: start: 20130309, end: 20130313

REACTIONS (7)
  - Application site scar [Not Recovered/Not Resolved]
  - Application site vesicles [Recovered/Resolved]
  - Application site erythema [Recovered/Resolved]
  - Application site swelling [Not Recovered/Not Resolved]
  - Application site discharge [Recovered/Resolved]
  - Application site pruritus [Recovered/Resolved]
  - Application site pain [Not Recovered/Not Resolved]
